FAERS Safety Report 7400795-9 (Version None)
Quarter: 2011Q2

REPORT INFORMATION
  Report Type: 
  Country: None (occurrence: None)
  Receive Date: 20110407
  Receipt Date: 20110331
  Transmission Date: 20111010
  Serious: Yes (Other)
  Sender: FDA-Public Use
  Company Number: B0711488A

PATIENT
  Sex: Female

DRUGS (1)
  1. MALARONE [Suspect]
     Indication: MALARIA PROPHYLAXIS
     Route: 048
     Dates: start: 20110302, end: 20110311

REACTIONS (5)
  - HALLUCINATION [None]
  - NIGHTMARE [None]
  - INSOMNIA [None]
  - DYSPNOEA [None]
  - FATIGUE [None]
